FAERS Safety Report 13854268 (Version 1)
Quarter: 2017Q3

REPORT INFORMATION
  Report Type: Spontaneous
  Country: US (occurrence: US)
  Receive Date: 20170810
  Receipt Date: 20170810
  Transmission Date: 20171127
  Serious: No
  Sender: FDA-Public Use
  Company Number: None

PATIENT

DRUGS (2)
  1. FLUOXETINE [Suspect]
     Active Substance: FLUOXETINE HYDROCHLORIDE
  2. PAROXETINE HCL [Suspect]
     Active Substance: PAROXETINE HYDROCHLORIDE

REACTIONS (4)
  - Drug dispensing error [None]
  - Urinary incontinence [None]
  - Wrong drug administered [None]
  - Abnormal behaviour [None]
